FAERS Safety Report 22008346 (Version 2)
Quarter: 2023Q1

REPORT INFORMATION
  Report Type: Spontaneous
  Country: GR (occurrence: GR)
  Receive Date: 20230219
  Receipt Date: 20230228
  Transmission Date: 20230418
  Serious: Yes (Hospitalization, Other)
  Sender: FDA-Public Use
  Company Number: GR-AUROBINDO-AUR-APL-2023-004979

PATIENT
  Age: 28 Year
  Sex: Male

DRUGS (14)
  1. MIRTAZAPINE [Suspect]
     Active Substance: MIRTAZAPINE
     Indication: Bipolar disorder
     Dosage: UNK
     Route: 065
  2. MIRTAZAPINE [Suspect]
     Active Substance: MIRTAZAPINE
     Indication: Bipolar I disorder
  3. AGOMELATINE [Suspect]
     Active Substance: AGOMELATINE
     Indication: Bipolar disorder
     Dosage: UNK
     Route: 065
  4. AGOMELATINE [Suspect]
     Active Substance: AGOMELATINE
     Indication: Off label use
  5. ARIPIPRAZOLE [Suspect]
     Active Substance: ARIPIPRAZOLE
     Indication: Bipolar disorder
     Dosage: UNK
     Route: 065
  6. ARIPIPRAZOLE [Suspect]
     Active Substance: ARIPIPRAZOLE
     Indication: Bipolar I disorder
  7. CLOMIPRAMINE [Suspect]
     Active Substance: CLOMIPRAMINE
     Indication: Bipolar disorder
     Dosage: UNK
     Route: 065
  8. CLOMIPRAMINE [Suspect]
     Active Substance: CLOMIPRAMINE
     Indication: Bipolar I disorder
  9. LEVOMEPROMAZINE [Suspect]
     Active Substance: LEVOMEPROMAZINE
     Indication: Bipolar disorder
     Dosage: UNK
     Route: 065
  10. LEVOMEPROMAZINE [Suspect]
     Active Substance: LEVOMEPROMAZINE
     Indication: Bipolar I disorder
  11. SERTRALINE [Suspect]
     Active Substance: SERTRALINE HYDROCHLORIDE
     Indication: Bipolar disorder
     Dosage: UNK
     Route: 065
  12. SERTRALINE [Suspect]
     Active Substance: SERTRALINE HYDROCHLORIDE
     Indication: Bipolar I disorder
  13. VALPROIC ACID [Concomitant]
     Active Substance: VALPROIC ACID
     Indication: Mood swings
     Dosage: UNK
     Route: 065
  14. OLANZAPINE [Concomitant]
     Active Substance: OLANZAPINE
     Indication: Bipolar disorder
     Dosage: UNK
     Route: 065

REACTIONS (4)
  - Manic symptom [Recovered/Resolved]
  - Bipolar disorder [Recovered/Resolved]
  - Drug ineffective [Unknown]
  - Multiple-drug resistance [Recovered/Resolved]
